FAERS Safety Report 7834777-X (Version None)
Quarter: 2011Q4

REPORT INFORMATION
  Report Type: 
  Country: None (occurrence: None)
  Receive Date: 20111024
  Receipt Date: 20111014
  Transmission Date: 20120403
  Serious: No
  Sender: FDA-Public Use
  Company Number: US-JNJFOC-20111008376

PATIENT
  Sex: Female
  Weight: 70.31 kg

DRUGS (7)
  1. WELLBUTRIN [Concomitant]
     Indication: MENTAL DISORDER
     Route: 048
  2. ATENOLOL [Concomitant]
     Indication: HYPERTENSION
     Route: 048
  3. ZYPREXA [Concomitant]
     Indication: MENTAL DISORDER
     Route: 048
  4. FENTANYL-100 [Suspect]
     Indication: BACK PAIN
     Route: 062
     Dates: start: 20111013
  5. OXYCONTIN [Concomitant]
     Indication: PAIN
     Route: 048
  6. PERCOCET [Concomitant]
     Indication: PAIN
     Route: 048
  7. COUMADIN [Concomitant]
     Indication: BLOOD DISORDER
     Route: 048

REACTIONS (1)
  - WRONG TECHNIQUE IN DRUG USAGE PROCESS [None]
